FAERS Safety Report 6133232-5 (Version None)
Quarter: 2009Q1

REPORT INFORMATION
  Report Type: 
  Country: None (occurrence: None)
  Receive Date: 20090324
  Receipt Date: 20090312
  Transmission Date: 20090719
  Serious: Yes (Other)
  Sender: FDA-Public Use
  Company Number: 232203K09USA

PATIENT
  Age: 58 Year
  Sex: Female
  Weight: 78 kg

DRUGS (12)
  1. REBIF [Suspect]
     Indication: MULTIPLE SCLEROSIS
     Dosage: 44 MCG, 3 IN 1 WEEKS, SUBCUTANEOUS
     Route: 058
     Dates: start: 20060605
  2. ADVIL [Concomitant]
  3. EFFEXOR XR [Concomitant]
  4. GABAPENTIN [Concomitant]
  5. XANAX [Concomitant]
  6. SIMVASTATIN [Concomitant]
  7. PRINZIDE [Concomitant]
  8. METOPROLOL SUCCINATE ER (METOPROLOL SUCCINATE) [Concomitant]
  9. NEXIUM [Concomitant]
  10. PROVIGIL [Concomitant]
  11. REQUIP [Concomitant]
  12. ACTONEL [Concomitant]

REACTIONS (2)
  - DIABETES MELLITUS [None]
  - RHEUMATOID ARTHRITIS [None]
